FAERS Safety Report 9488513 (Version 4)
Quarter: 2013Q3

REPORT INFORMATION
  Report Type: Spontaneous
  Country: US (occurrence: US)
  Receive Date: 20130829
  Receipt Date: 20130920
  Transmission Date: 20140515
  Serious: Yes (Hospitalization, Other)
  Sender: FDA-Public Use
  Company Number: US-009507513-1308USA013530

PATIENT
  Age: 57 Year
  Sex: Male

DRUGS (2)
  1. THERAPY UNSPECIFIED [Suspect]
     Dosage: 100 MG, ONCE DAILY
     Route: 048
     Dates: start: 201208
  2. PRINIVIL [Concomitant]

REACTIONS (2)
  - Pancreatitis [Recovering/Resolving]
  - Pain [Recovering/Resolving]
